FAERS Safety Report 15171346 (Version 2)
Quarter: 2019Q2

REPORT INFORMATION
  Report Type: Spontaneous
  Country: US (occurrence: US)
  Receive Date: 20180720
  Receipt Date: 20190606
  Transmission Date: 20190711
  Serious: Yes (Other)
  Sender: FDA-Public Use
  Company Number: US-AMGEN-USASP2018085914

PATIENT
  Age: 71 Year
  Sex: Female
  Weight: 63.49 kg

DRUGS (1)
  1. PROLIA [Suspect]
     Active Substance: DENOSUMAB
     Indication: OSTEOPOROSIS POSTMENOPAUSAL
     Dosage: 60 MG, Q6MO
     Route: 058
     Dates: start: 20180525

REACTIONS (8)
  - Gait disturbance [Unknown]
  - Abdominal distension [Unknown]
  - Back pain [Unknown]
  - Neck pain [Recovered/Resolved]
  - Drug hypersensitivity [Unknown]
  - Myalgia [Unknown]
  - Spinal fracture [Unknown]
  - Muscle spasms [Unknown]

NARRATIVE: CASE EVENT DATE: 2018
